FAERS Safety Report 16983546 (Version 1)
Quarter: 2019Q4

REPORT INFORMATION
  Report Type: Spontaneous
  Country: DE (occurrence: DE)
  Receive Date: 20191101
  Receipt Date: 20191101
  Transmission Date: 20200122
  Serious: Yes (Other)
  Sender: FDA-Public Use
  Company Number: DE-ROCHE-2415201

PATIENT
  Age: 83 Year
  Sex: Male

DRUGS (1)
  1. ERIVEDGE [Suspect]
     Active Substance: VISMODEGIB
     Indication: BASAL CELL CARCINOMA
     Route: 048
     Dates: start: 201905

REACTIONS (2)
  - Urinary tract infection [Recovered/Resolved]
  - Creatinine urine increased [Unknown]

NARRATIVE: CASE EVENT DATE: 20190911
